FAERS Safety Report 20810393 (Version 2)
Quarter: 2022Q3

REPORT INFORMATION
  Report Type: Spontaneous
  Country: US (occurrence: US)
  Receive Date: 20220510
  Receipt Date: 20220726
  Transmission Date: 20221026
  Serious: No
  Sender: FDA-Public Use
  Company Number: US-OYSTER POINT PHARMA, INC.-2022OYS00320

PATIENT
  Age: 73 Year
  Sex: Female
  Weight: 66.667 kg

DRUGS (7)
  1. TYRVAYA [Suspect]
     Active Substance: VARENICLINE TARTRATE
     Indication: Dry eye
     Dosage: 1 SPRAY INTO EACH NOSTRIL, 2X/DAY
     Route: 045
     Dates: start: 20220302, end: 20220320
  2. METHOTREXATE [Concomitant]
     Active Substance: METHOTREXATE
  3. FOLATE SODIUM [Concomitant]
     Active Substance: FOLATE SODIUM
  4. ^CIMELA^ [Concomitant]
  5. BUDESONIDE [Concomitant]
     Active Substance: BUDESONIDE
  6. PERFOROMIST [Concomitant]
     Active Substance: FORMOTEROL FUMARATE DIHYDRATE
  7. GABAPENTIN [Concomitant]
     Active Substance: GABAPENTIN

REACTIONS (2)
  - Headache [Recovered/Resolved]
  - Epistaxis [Recovered/Resolved]

NARRATIVE: CASE EVENT DATE: 20220312
